FAERS Safety Report 11669199 (Version 1)
Quarter: 2015Q4

REPORT INFORMATION
  Report Type: Spontaneous
  Country: US (occurrence: US)
  Receive Date: 20151027
  Receipt Date: 20151027
  Transmission Date: 20160304
  Serious: No
  Sender: FDA-Public Use
  Company Number: US-ELI_LILLY_AND_COMPANY-US201002004513

PATIENT
  Sex: Female

DRUGS (3)
  1. FORTEO [Suspect]
     Active Substance: TERIPARATIDE
     Dosage: 20 UG, DAILY (1/D)
     Dates: start: 2010
  2. TYLENOL [Concomitant]
     Active Substance: ACETAMINOPHEN
     Dosage: UNK, UNKNOWN
  3. FORTEO [Suspect]
     Active Substance: TERIPARATIDE
     Indication: OSTEOPOROSIS
     Dosage: 20 UG, DAILY (1/D)
     Dates: start: 200908, end: 2010

REACTIONS (5)
  - Neck pain [Not Recovered/Not Resolved]
  - Dyspepsia [Unknown]
  - Muscle strain [Not Recovered/Not Resolved]
  - Blood calcium increased [Unknown]
  - Muscle strain [Not Recovered/Not Resolved]

NARRATIVE: CASE EVENT DATE: 2010
